FAERS Safety Report 23624415 (Version 1)
Quarter: 2024Q1

REPORT INFORMATION
  Report Type: Report from Study
  Country: US (occurrence: US)
  Receive Date: 20240312
  Receipt Date: 20240312
  Transmission Date: 20240409
  Serious: Yes (Other)
  Sender: FDA-Public Use
  Company Number: US-ABBVIE-5669921

PATIENT
  Sex: Female

DRUGS (1)
  1. RESTASIS [Suspect]
     Active Substance: CYCLOSPORINE
     Indication: Product used for unknown indication
     Dosage: FORM STRENGTH: 0.5MG/ML
     Route: 047

REACTIONS (5)
  - Cataract [Unknown]
  - Dry eye [Unknown]
  - Vitreous floaters [Unknown]
  - Eye contusion [Unknown]
  - Visual impairment [Unknown]
